FAERS Safety Report 7260266-X (Version None)
Quarter: 2011Q1

REPORT INFORMATION
  Report Type: 
  Country: None (occurrence: None)
  Receive Date: 20110130
  Receipt Date: 20100907
  Transmission Date: 20110831
  Serious: No
  Sender: FDA-Public Use
  Company Number: US-ABBOTT-10P-163-0670074-00

PATIENT
  Sex: Female
  Weight: 77.18 kg

DRUGS (4)
  1. HUMIRA [Suspect]
     Indication: PSORIASIS
     Dates: start: 20080101
  2. UNKNOWN MEDICATION [Concomitant]
     Indication: HYPERTENSION
  3. GLYBURIDE [Concomitant]
     Indication: DIABETES MELLITUS
  4. FISH OIL [Concomitant]
     Indication: VITAMIN SUPPLEMENTATION

REACTIONS (3)
  - INJECTION SITE PAIN [None]
  - WRONG TECHNIQUE IN DRUG USAGE PROCESS [None]
  - RASH VESICULAR [None]
